FAERS Safety Report 10498757 (Version 4)
Quarter: 2018Q2

REPORT INFORMATION
  Report Type: Spontaneous
  Country: US (occurrence: US)
  Receive Date: 20141006
  Receipt Date: 20180619
  Transmission Date: 20180711
  Serious: Yes (Other)
  Sender: FDA-Public Use
  Company Number: US-ELI_LILLY_AND_COMPANY-US201409009659

PATIENT
  Sex: Male

DRUGS (14)
  1. FISH OIL [Concomitant]
     Active Substance: FISH OIL
  2. VITAMIN B1 [Concomitant]
     Active Substance: THIAMINE HYDROCHLORIDE
  3. METOPROLOL TARTRATE. [Concomitant]
     Active Substance: METOPROLOL TARTRATE
  4. BAYER ASPIRIN [Concomitant]
     Active Substance: ASPIRIN
  5. LOSARTAN POTASSIUM. [Concomitant]
     Active Substance: LOSARTAN POTASSIUM
  6. HUMALOG [Suspect]
     Active Substance: INSULIN LISPRO
     Indication: TYPE 2 DIABETES MELLITUS
     Dosage: UNK, TID
     Route: 065
     Dates: start: 2011
  7. GABAPENTIN. [Concomitant]
     Active Substance: GABAPENTIN
  8. RANEXA [Concomitant]
     Active Substance: RANOLAZINE
  9. OMEPRAZOLE. [Concomitant]
     Active Substance: OMEPRAZOLE
  10. AMLODIPINE BESYLATE. [Concomitant]
     Active Substance: AMLODIPINE BESYLATE
  11. ATORVASTATIN [Concomitant]
     Active Substance: ATORVASTATIN
  12. METFORMIN [Concomitant]
     Active Substance: METFORMIN HYDROCHLORIDE
  13. HUMALOG [Suspect]
     Active Substance: INSULIN LISPRO
     Dosage: 109 U, DAILY
     Route: 058
  14. LANTUS [Concomitant]
     Active Substance: INSULIN GLARGINE

REACTIONS (6)
  - Dyspnoea [Unknown]
  - Blood glucose decreased [Unknown]
  - Dyslipidaemia [Unknown]
  - Cerebrovascular accident [Recovering/Resolving]
  - Blood glucose abnormal [Unknown]
  - Headache [Unknown]

NARRATIVE: CASE EVENT DATE: 201405
